FAERS Safety Report 9844975 (Version 3)
Quarter: 2014Q3

REPORT INFORMATION
  Report Type: Spontaneous
  Country: GB (occurrence: None)
  Receive Date: 20140122
  Receipt Date: 20140731
  Transmission Date: 20150326
  Serious: Yes (Life-Threatening, Hospitalization)
  Sender: FDA-Public Use
  Company Number: 2123494

PATIENT
  Age: 36 Year
  Sex: Female

DRUGS (13)
  1. METOCLOPRAMIDE. [Concomitant]
     Active Substance: METOCLOPRAMIDE
  2. TRASTUZUMAB [Concomitant]
     Active Substance: TRASTUZUMAB
  3. ZOPICLONE [Concomitant]
     Active Substance: ZOPICLONE
  4. CITALOPRAM [Concomitant]
     Active Substance: CITALOPRAM HYDROBROMIDE
  5. PERTUZUMAB [Concomitant]
     Active Substance: PERTUZUMAB
  6. DENOSUMAB [Concomitant]
     Active Substance: DENOSUMAB
  7. DIAMORPHINE [Concomitant]
     Active Substance: DIACETYLMORPHINE
  8. MORPHINE SULPHATE [Concomitant]
     Active Substance: MORPHINE SULFATE
  9. DOCETAXEL [Suspect]
     Active Substance: DOCETAXEL
     Indication: BREAST CANCER
     Dosage: 140 MG MILLIGRAM(S), 3 WEEK, INTRAVENOUS (NOT OTHERWISE SPECIFIED)?
     Route: 042
     Dates: start: 20130806
  10. CYCLIZINE [Concomitant]
     Active Substance: CYCLIZINE
  11. CALCIUM CARBONATE W/COLECALCIFEROL [Concomitant]
  12. FLUCONAZOLE. [Concomitant]
     Active Substance: FLUCONAZOLE
  13. IBUPROFEN. [Concomitant]
     Active Substance: IBUPROFEN

REACTIONS (3)
  - Neutropenic sepsis [None]
  - Vascular access complication [None]
  - Nausea [None]

NARRATIVE: CASE EVENT DATE: 20131127
